FAERS Safety Report 23494933 (Version 1)
Quarter: 2024Q1

REPORT INFORMATION
  Report Type: Spontaneous
  Country: FR (occurrence: FR)
  Receive Date: 20240207
  Receipt Date: 20240207
  Transmission Date: 20240410
  Serious: Yes (Life-Threatening)
  Sender: FDA-Public Use
  Company Number: None

PATIENT
  Age: 61 Year
  Sex: Male
  Weight: 78 kg

DRUGS (3)
  1. ROCURONIUM BROMIDE [Suspect]
     Active Substance: ROCURONIUM BROMIDE
     Indication: General anaesthesia
     Dosage: 45 MG
     Route: 042
     Dates: start: 20240108, end: 20240108
  2. REMIFENTANIL HYDROCHLORIDE [Suspect]
     Active Substance: REMIFENTANIL HYDROCHLORIDE
     Indication: General anaesthesia
     Dosage: ROA: IV
     Dates: start: 20240108, end: 20240108
  3. ETOMIDATE HYDROCHLORIDE [Suspect]
     Active Substance: ETOMIDATE HYDROCHLORIDE
     Indication: General anaesthesia
     Dosage: 20 MG?ROA: INTRAVENOUS
     Dates: start: 20240108, end: 20240108

REACTIONS (1)
  - Anaphylactic reaction [Recovered/Resolved]

NARRATIVE: CASE EVENT DATE: 20240108
